FAERS Safety Report 13734009 (Version 1)
Quarter: 2017Q3

REPORT INFORMATION
  Report Type: Spontaneous
  Country: GB (occurrence: GB)
  Receive Date: 20170708
  Receipt Date: 20170708
  Transmission Date: 20171127
  Serious: Yes (Other)
  Sender: FDA-Public Use
  Company Number: GB-009507513-1706GBR008471

PATIENT
  Age: 46 Year
  Sex: Male

DRUGS (2)
  1. REGAINE [Concomitant]
     Active Substance: MINOXIDIL
  2. PROPECIA [Suspect]
     Active Substance: FINASTERIDE
     Indication: ANDROGENETIC ALOPECIA
     Dosage: 1 MG, QD, FOR SEVERAL YEARS
     Route: 048
     Dates: end: 20170608

REACTIONS (1)
  - Breast mass [Recovered/Resolved]

NARRATIVE: CASE EVENT DATE: 20170511
